FAERS Safety Report 15430823 (Version 1)
Quarter: 2018Q3

REPORT INFORMATION
  Report Type: Spontaneous
  Country: US (occurrence: US)
  Receive Date: 20180926
  Receipt Date: 20180926
  Transmission Date: 20181010
  Serious: No
  Sender: FDA-Public Use
  Company Number: US-BAYER-2018-179211

PATIENT
  Age: 61 Year
  Sex: Female
  Weight: 63.99 kg

DRUGS (3)
  1. VITAMIN C [ASCORBIC ACID] [Concomitant]
  2. CALCIUM [CALCIUM] [Concomitant]
     Active Substance: CALCIUM
  3. ALEVE BACK AND MUSCLE PAIN [Suspect]
     Active Substance: NAPROXEN SODIUM
     Indication: PAIN
     Dosage: 1 DF, QD
     Route: 048
     Dates: start: 20180923

REACTIONS (1)
  - Drug effect incomplete [Unknown]

NARRATIVE: CASE EVENT DATE: 20180923
